FAERS Safety Report 18590174 (Version 1)
Quarter: 2020Q4

REPORT INFORMATION
  Report Type: Spontaneous
  Country: US (occurrence: US)
  Receive Date: 20201208
  Receipt Date: 20201208
  Transmission Date: 20210114
  Serious: No
  Sender: FDA-Public Use
  Company Number: US-TEVA-2020-US-1856998

PATIENT
  Age: 66 Year
  Sex: Male

DRUGS (20)
  1. ASPIRIN 81 MG [Concomitant]
     Active Substance: ASPIRIN
     Route: 048
  2. ROPINIROLE 2 MG [Concomitant]
     Active Substance: ROPINIROLE HYDROCHLORIDE
     Route: 048
  3. GABAPENTIN 800 MG [Concomitant]
     Active Substance: GABAPENTIN
     Route: 048
  4. TRULICITY 0,75MG/0,5ML [Concomitant]
     Route: 058
  5. AUSTEDO [Suspect]
     Active Substance: DEUTETRABENAZINE
     Indication: TARDIVE DYSKINESIA
     Dosage: 18 MILLIGRAM DAILY;
     Route: 065
     Dates: start: 20201012
  6. BIOTENE DRY MOUTH MOISTURIZING [Concomitant]
  7. QUETIAPINE 200 MG [Concomitant]
     Active Substance: QUETIAPINE
     Route: 048
  8. ALPRAZOLAM 1 MG [Concomitant]
     Active Substance: ALPRAZOLAM
     Route: 048
  9. TAMSULOSIN 0,4 MG [Concomitant]
     Route: 048
  10. DULOXETINE 30 MG [Concomitant]
     Active Substance: DULOXETINE
     Route: 048
  11. ABACAVIR SULFATE 300 MG [Concomitant]
     Route: 048
  12. PRIMIDONE 250 MG [Concomitant]
     Route: 048
  13. NEXIUM 20 MG [Concomitant]
     Route: 048
  14. LUNESTA [Concomitant]
     Active Substance: ESZOPICLONE
     Route: 048
  15. FLUOXETINE [Concomitant]
     Active Substance: FLUOXETINE HYDROCHLORIDE
     Route: 048
  16. ISENTRESS 400 MG [Concomitant]
     Route: 048
  17. PRAVASTATIN 40 MG [Concomitant]
     Active Substance: PRAVASTATIN
     Route: 048
  18. LAMIVUDINE 150 MG [Concomitant]
     Route: 048
  19. GLIPIZIDE 5 MG [Concomitant]
     Active Substance: GLIPIZIDE
     Route: 048
  20. FENOFIBRATE 54 MG [Concomitant]
     Route: 048

REACTIONS (2)
  - Rash [Unknown]
  - Insomnia [Unknown]
